FAERS Safety Report 10683503 (Version 3)
Quarter: 2015Q1

REPORT INFORMATION
  Report Type: Spontaneous
  Country: IT (occurrence: IT)
  Receive Date: 20141230
  Receipt Date: 20150218
  Transmission Date: 20150720
  Serious: Yes (Hospitalization)
  Sender: FDA-Public Use
  Company Number: IT-WATSON-2014-27660

PATIENT
  Age: 89 Year
  Sex: Female

DRUGS (2)
  1. ALDACTONE [Suspect]
     Active Substance: SPIRONOLACTONE
     Indication: HYPOKALAEMIA
     Dosage: 50 MG, DAILY
     Route: 048
     Dates: start: 20140101, end: 20140916
  2. RAMIPRIL (UNKNOWN) [Suspect]
     Active Substance: RAMIPRIL
     Indication: ESSENTIAL HYPERTENSION
     Dosage: 2.5 MG, DAILY
     Route: 048
     Dates: start: 20140101, end: 20140916

REACTIONS (2)
  - Hyperkalaemia [Recovering/Resolving]
  - Condition aggravated [Recovering/Resolving]

NARRATIVE: CASE EVENT DATE: 20140919
